FAERS Safety Report 16047920 (Version 1)
Quarter: 2019Q1

REPORT INFORMATION
  Report Type: Spontaneous
  Country: US (occurrence: US)
  Receive Date: 20190307
  Receipt Date: 20190307
  Transmission Date: 20190418
  Serious: No
  Sender: FDA-Public Use
  Company Number: US-009507513-1903USA001581

PATIENT

DRUGS (4)
  1. COSENTYX [Concomitant]
     Active Substance: SECUKINUMAB
     Dosage: UNK
     Dates: start: 201808, end: 201809
  2. ZOCOR [Suspect]
     Active Substance: SIMVASTATIN
     Route: 048
  3. METHOTREXATE. [Concomitant]
     Active Substance: METHOTREXATE
     Indication: LIVER FUNCTION TEST INCREASED
     Dosage: UNK
     Dates: start: 201707, end: 201809
  4. ENBREL [Concomitant]
     Active Substance: ETANERCEPT
     Dosage: UNK
     Dates: start: 201701, end: 201707

REACTIONS (1)
  - Drug hypersensitivity [Unknown]
